FAERS Safety Report 5047676-6 (Version None)
Quarter: 2006Q3

REPORT INFORMATION
  Report Type: 
  Country: None (occurrence: None)
  Receive Date: 20060706
  Receipt Date: 20060706
  Transmission Date: 20061208
  Serious: Yes (Hospitalization, Other)
  Sender: FDA-Public Use
  Company Number: None

PATIENT
  Age: 35 Year
  Sex: Female
  Weight: 71.6683 kg

DRUGS (3)
  1. KETEK [Suspect]
     Indication: PHARYNGITIS
     Dosage: 800 MG PO QD
     Route: 048
     Dates: start: 20060531
  2. KETEK [Suspect]
     Indication: PHARYNGITIS
     Dosage: 800 MG PO QD
     Route: 048
     Dates: start: 20060601
  3. KETEK [Suspect]
     Indication: PHARYNGITIS
     Dosage: 800 MG PO QD
     Route: 048
     Dates: start: 20060602

REACTIONS (4)
  - ABDOMINAL PAIN UPPER [None]
  - BILIARY COLIC [None]
  - LIPASE INCREASED [None]
  - TRANSAMINASES INCREASED [None]
